FAERS Safety Report 16923950 (Version 1)
Quarter: 2019Q4

REPORT INFORMATION
  Report Type: Spontaneous
  Country: US (occurrence: US)
  Receive Date: 20190823
  Receipt Date: 20190823
  Transmission Date: 20200122
  Serious: No
  Sender: FDA-Public Use
  Company Number: None

PATIENT
  Age: 67 Year
  Sex: Female

DRUGS (1)
  1. HUMIRA [Suspect]
     Active Substance: ADALIMUMAB
     Route: 058
     Dates: start: 20190731

REACTIONS (12)
  - Musculoskeletal stiffness [None]
  - Arthralgia [None]
  - Loss of personal independence in daily activities [None]
  - Erythema [None]
  - Discomfort [None]
  - Headache [None]
  - Dry mouth [None]
  - Muscle spasms [None]
  - Gait disturbance [None]
  - Fatigue [None]
  - Pain [None]
  - Swelling face [None]

NARRATIVE: CASE EVENT DATE: 201908
